FAERS Safety Report 11221475 (Version 2)
Quarter: 2015Q3

REPORT INFORMATION
  Report Type: Spontaneous
  Country: US (occurrence: US)
  Receive Date: 20150626
  Receipt Date: 20150706
  Transmission Date: 20151125
  Serious: No
  Sender: FDA-Public Use
  Company Number: US-PFIZER INC-2015213000

PATIENT
  Sex: Male
  Weight: 84 kg

DRUGS (1)
  1. SUTENT [Suspect]
     Active Substance: SUNITINIB MALATE
     Indication: RENAL CELL CARCINOMA
     Dosage: 50 MG, CYCLIC (1X/DAY)
     Dates: start: 20150205

REACTIONS (7)
  - Blister [Unknown]
  - Diarrhoea [Unknown]
  - Joint swelling [Unknown]
  - Oesophageal pain [Unknown]
  - Odynophagia [Unknown]
  - Hyperaesthesia [Unknown]
  - Eye swelling [Unknown]
